FAERS Safety Report 11686276 (Version 1)
Quarter: 2015Q4

REPORT INFORMATION
  Report Type: Spontaneous
  Country: IT (occurrence: IT)
  Receive Date: 20151030
  Receipt Date: 20151030
  Transmission Date: 20160304
  Serious: Yes (Hospitalization)
  Sender: FDA-Public Use
  Company Number: IT-DSJP-DSE-2015-134251

PATIENT

DRUGS (1)
  1. PLAUNAZIDE 20 MG / 25 MG [Suspect]
     Active Substance: HYDROCHLOROTHIAZIDE\OLMESARTAN MEDOXOMIL
     Indication: HYPERTENSION
     Dosage: 20/25 MG, SINGLE
     Route: 048
     Dates: start: 20151024, end: 20151024

REACTIONS (4)
  - Diarrhoea [Recovering/Resolving]
  - Chills [Recovering/Resolving]
  - Leukopenia [Recovering/Resolving]
  - Pulmonary oedema [Recovering/Resolving]

NARRATIVE: CASE EVENT DATE: 20151024
